FAERS Safety Report 13266130 (Version 2)
Quarter: 2017Q3

REPORT INFORMATION
  Report Type: Spontaneous
  Country: FR (occurrence: FR)
  Receive Date: 20170223
  Receipt Date: 20170719
  Transmission Date: 20171127
  Serious: Yes (Death, Congenital Anomaly, Other)
  Sender: FDA-Public Use
  Company Number: FR-ABBVIE-17P-056-1884411-00

PATIENT

DRUGS (4)
  1. NORVIR [Suspect]
     Active Substance: RITONAVIR
     Indication: MATERNAL EXPOSURE TIMING UNSPECIFIED
     Route: 064
  2. ATRIPLA [Suspect]
     Active Substance: EFAVIRENZ\EMTRICITABINE\TENOFOVIR DISOPROXIL FUMARATE
     Indication: MATERNAL EXPOSURE TIMING UNSPECIFIED
     Dosage: 600MG/200MG/245MG
     Route: 064
  3. PREZISTA [Suspect]
     Active Substance: DARUNAVIR ETHANOLATE
     Indication: MATERNAL EXPOSURE TIMING UNSPECIFIED
     Route: 064
  4. TRUVADA [Suspect]
     Active Substance: EMTRICITABINE\TENOFOVIR DISOPROXIL FUMARATE
     Indication: MATERNAL EXPOSURE TIMING UNSPECIFIED
     Dosage: 200MG/245MG
     Route: 064

REACTIONS (15)
  - Nervous system disorder [Fatal]
  - Renal failure [Unknown]
  - Heart disease congenital [Fatal]
  - Pulmonary artery atresia [Unknown]
  - Glucose tolerance impaired [Unknown]
  - Hypoalbuminaemia [Unknown]
  - Foetal exposure during pregnancy [Unknown]
  - Jaundice cholestatic [Unknown]
  - Ventricular hypoplasia [Unknown]
  - Epilepsy [Unknown]
  - Status epilepticus [Unknown]
  - Hypokalaemia [Unknown]
  - Cardio-respiratory arrest [Unknown]
  - Perinatal brain damage [Unknown]
  - Haemorrhagic cerebral infarction [Unknown]
